FAERS Safety Report 4697551-1 (Version None)
Quarter: 2005Q2

REPORT INFORMATION
  Report Type: 
  Country: None (occurrence: None)
  Receive Date: 20050622
  Receipt Date: 20050316
  Transmission Date: 20051028
  Serious: Yes (Death, Hospitalization)
  Sender: FDA-Public Use
  Company Number: US-MERCK-0503USA03428

PATIENT
  Age: 62 Year
  Sex: Female
  Weight: 70 kg

DRUGS (9)
  1. VIOXX [Suspect]
     Indication: PAIN
     Route: 048
     Dates: start: 20010420
  2. GLIPIZIDE [Concomitant]
     Route: 048
  3. HYDROCODONE BITARTRATE [Concomitant]
     Route: 048
  4. SOMA [Concomitant]
     Route: 048
  5. DARVON [Concomitant]
     Route: 065
  6. ESTRADIOL [Concomitant]
     Route: 048
  7. ZOCOR [Concomitant]
     Route: 048
  8. CELEBREX [Concomitant]
     Route: 048
     Dates: end: 20010420
  9. CELEXA [Concomitant]
     Route: 048

REACTIONS (5)
  - CEREBROVASCULAR ACCIDENT [None]
  - HYPERGLYCAEMIA [None]
  - HYPOAESTHESIA [None]
  - PAIN [None]
  - RESPIRATORY FAILURE [None]
